FAERS Safety Report 12246213 (Version 6)
Quarter: 2018Q2

REPORT INFORMATION
  Report Type: Report from Study
  Country: DE (occurrence: DE)
  Receive Date: 20160407
  Receipt Date: 20180608
  Transmission Date: 20180711
  Serious: Yes (Hospitalization, Other)
  Sender: FDA-Public Use
  Company Number: PHHY2016DE044893

PATIENT
  Age: 66 Year
  Sex: Male
  Weight: 82 kg

DRUGS (6)
  1. ERYPO [Concomitant]
     Indication: ANAEMIA
     Dosage: 40000 OT, UNK
     Route: 058
     Dates: start: 20140507
  2. EXJADE [Suspect]
     Active Substance: DEFERASIROX
     Dosage: UNK
     Route: 048
     Dates: start: 20160301, end: 20160317
  3. PANTOPRAZOLE [Concomitant]
     Active Substance: PANTOPRAZOLE
     Indication: PROPHYLAXIS
     Route: 048
  4. EXJADE [Suspect]
     Active Substance: DEFERASIROX
     Indication: MYELODYSPLASTIC SYNDROME
     Dosage: 1500 MG (20 MG/KG) (3X500 MG), QD
     Route: 048
     Dates: start: 20160220, end: 20160229
  5. EXJADE [Suspect]
     Active Substance: DEFERASIROX
     Dosage: 1500 MG (15 MG/KG) (3X500 MG), QD
     Route: 048
     Dates: start: 20160318, end: 20160401
  6. ERYTHROPOETIN [Concomitant]
     Active Substance: ERYTHROPOIETIN
     Indication: PRODUCT USED FOR UNKNOWN INDICATION
     Dosage: 40000 OT, QD
     Route: 065
     Dates: start: 20140401

REACTIONS (6)
  - Ear infection [Recovered/Resolved]
  - Pneumonia [Recovered/Resolved]
  - Neutrophil count decreased [Unknown]
  - White blood cell count decreased [Unknown]
  - Anaemia [Unknown]
  - Febrile infection [Recovered/Resolved]

NARRATIVE: CASE EVENT DATE: 20160301
